FAERS Safety Report 20143065 (Version 1)
Quarter: 2021Q4

REPORT INFORMATION
  Report Type: Spontaneous
  Country: CA (occurrence: CA)
  Receive Date: 20211202
  Receipt Date: 20211202
  Transmission Date: 20220303
  Serious: Yes (Disabling)
  Sender: FDA-Public Use
  Company Number: CA-AUROBINDO-AUR-APL-2021-049094

PATIENT
  Age: 44 Year
  Sex: Female

DRUGS (3)
  1. CIPROFLOXACIN HYDROCHLORIDE [Suspect]
     Active Substance: CIPROFLOXACIN HYDROCHLORIDE
     Indication: Pharyngitis
     Dosage: 500 MILLIGRAM, TWO TIMES A DAY
     Route: 048
  2. CIPROFLOXACIN HYDROCHLORIDE [Suspect]
     Active Substance: CIPROFLOXACIN HYDROCHLORIDE
     Indication: Ear infection
  3. CLINDAMYCIN [Concomitant]
     Active Substance: CLINDAMYCIN
     Indication: Product used for unknown indication
     Dosage: UNK
     Route: 065

REACTIONS (9)
  - Gait disturbance [Unknown]
  - Headache [Unknown]
  - Hypoaesthesia [Unknown]
  - Impaired driving ability [Unknown]
  - Pain in extremity [Unknown]
  - Paraesthesia [Unknown]
  - Plantar fasciitis [Unknown]
  - Tendonitis [Unknown]
  - Tremor [Unknown]
